FAERS Safety Report 23747408 (Version 1)
Quarter: 2024Q2

REPORT INFORMATION
  Report Type: Spontaneous
  Country: US (occurrence: None)
  Receive Date: 20240415
  Receipt Date: 20240415
  Transmission Date: 20240716
  Serious: No
  Sender: FDA-Public Use
  Company Number: None

PATIENT
  Age: 25 Year
  Sex: Female
  Weight: 63 kg

DRUGS (10)
  1. VTAMA [Suspect]
     Active Substance: TAPINAROF
     Indication: Psoriasis
     Dosage: FREQUENCY : AT BEDTIME;?
     Route: 061
     Dates: start: 20240401, end: 20240405
  2. ESCITALOPRAM [Concomitant]
     Active Substance: ESCITALOPRAM OXALATE
  3. NEXPLANON [Concomitant]
     Active Substance: ETONOGESTREL
  4. CLOBETASOL PROPIONATE [Concomitant]
     Active Substance: CLOBETASOL PROPIONATE
  5. hydrocortisone cream 2% [Concomitant]
  6. ALBUTEROL SULFATE [Concomitant]
     Active Substance: ALBUTEROL SULFATE
  7. Vitamin d 5000 [Concomitant]
  8. magnesium glycinate 50 [Concomitant]
  9. probiotic 4 billion [Concomitant]
  10. BENEFIBER [Concomitant]
     Active Substance: STARCH, WHEAT

REACTIONS (3)
  - Dyspnoea [None]
  - Chest discomfort [None]
  - Application site pruritus [None]

NARRATIVE: CASE EVENT DATE: 20240401
